FAERS Safety Report 7914842-9 (Version None)
Quarter: 2011Q4

REPORT INFORMATION
  Report Type: 
  Country: None (occurrence: None)
  Receive Date: 20111115
  Receipt Date: 20111107
  Transmission Date: 20120403
  Serious: Yes (Hospitalization, Other)
  Sender: FDA-Public Use
  Company Number: CN-ELI_LILLY_AND_COMPANY-CN201111003301

PATIENT
  Age: 58 Year
  Sex: Male

DRUGS (2)
  1. PRASUGREL HYDROCHLORIDE [Suspect]
     Indication: PERCUTANEOUS CORONARY INTERVENTION
     Dosage: 10 MG, QD
     Route: 048
  2. ASPIRIN [Concomitant]

REACTIONS (8)
  - PLEURAL EFFUSION [None]
  - EPIGASTRIC DISCOMFORT [None]
  - OESOPHAGEAL MASS [None]
  - ULCER [None]
  - GASTROINTESTINAL HAEMORRHAGE [None]
  - HAEMATEMESIS [None]
  - CHEST PAIN [None]
  - NAUSEA [None]
